FAERS Safety Report 6659990-9 (Version None)
Quarter: 2010Q1

REPORT INFORMATION
  Report Type: 
  Country: None (occurrence: None)
  Receive Date: 20100331
  Receipt Date: 20100329
  Transmission Date: 20100710
  Serious: Yes (Death)
  Sender: FDA-Public Use
  Company Number: US-BIOGENIDEC-2009BI036167

PATIENT
  Sex: Female

DRUGS (2)
  1. AVONEX [Suspect]
     Indication: MULTIPLE SCLEROSIS
     Route: 030
     Dates: start: 20020828
  2. COPAXONE [Concomitant]
     Dates: start: 20021201

REACTIONS (5)
  - ALOPECIA [None]
  - BREAST CANCER [None]
  - BREAST CANCER FEMALE [None]
  - DEATH [None]
  - MALAISE [None]
